FAERS Safety Report 5742430-1 (Version None)
Quarter: 2008Q2

REPORT INFORMATION
  Report Type: 
  Country: None (occurrence: None)
  Receive Date: 20080519
  Receipt Date: 20080509
  Transmission Date: 20081010
  Serious: Yes (Other)
  Sender: FDA-Public Use
  Company Number: JP-WYE-H04127108

PATIENT

DRUGS (4)
  1. OSTELUC [Suspect]
     Dosage: UNSPECIFIED
     Route: 048
  2. MUCOSTA [Concomitant]
  3. BROTIZOLAM [Concomitant]
  4. ASPIRIN [Concomitant]

REACTIONS (1)
  - PLATELET COUNT DECREASED [None]
